FAERS Safety Report 15315862 (Version 1)
Quarter: 2018Q3

REPORT INFORMATION
  Report Type: Spontaneous
  Country: US (occurrence: US)
  Receive Date: 20180815
  Receipt Date: 20180815
  Transmission Date: 20181010
  Serious: Yes (Hospitalization)
  Sender: FDA-Public Use
  Company Number: None

PATIENT
  Age: 78 Year
  Sex: Female
  Weight: 54.43 kg

DRUGS (8)
  1. LISINOPRIL. [Suspect]
     Active Substance: LISINOPRIL
     Indication: VISION BLURRED
     Dosage: HILLS ONCE DAQILY MOUTH
     Route: 048
     Dates: start: 20180716, end: 20180719
  2. LISINOPRIL. [Suspect]
     Active Substance: LISINOPRIL
     Indication: VISUAL IMPAIRMENT
     Dosage: HILLS ONCE DAQILY MOUTH
     Route: 048
     Dates: start: 20180716, end: 20180719
  3. SYSTANE (HYPROMELLOSE 2910 (4000 MPA.S)) [Concomitant]
     Active Substance: HYPROMELLOSE 2910 (4000 MPA.S)
  4. LISINOPRIL. [Suspect]
     Active Substance: LISINOPRIL
     Indication: HYPERTENSION
     Dosage: HILLS ONCE DAQILY MOUTH
     Route: 048
     Dates: start: 20180716, end: 20180719
  5. LISINOPRIL. [Suspect]
     Active Substance: LISINOPRIL
     Indication: GLAUCOMA
     Dosage: HILLS ONCE DAQILY MOUTH
     Route: 048
     Dates: start: 20180716, end: 20180719
  6. VITAMIN D [Concomitant]
     Active Substance: CHOLECALCIFEROL
  7. BRINOMIDINE [Concomitant]
  8. FLOVENT [Concomitant]
     Active Substance: FLUTICASONE PROPIONATE

REACTIONS (6)
  - Ocular hyperaemia [None]
  - Palpitations [None]
  - Blood pressure increased [None]
  - Vision blurred [None]
  - Chest discomfort [None]
  - Product substitution issue [None]

NARRATIVE: CASE EVENT DATE: 20180716
